FAERS Safety Report 12619849 (Version 4)
Quarter: 2017Q2

REPORT INFORMATION
  Report Type: Report from Study
  Country: BR (occurrence: BR)
  Receive Date: 20160803
  Receipt Date: 20170623
  Transmission Date: 20170830
  Serious: Yes (Life-Threatening, Other)
  Sender: FDA-Public Use
  Company Number: PHHY2016BR106052

PATIENT
  Sex: Female
  Weight: 59 kg

DRUGS (12)
  1. ONBREZ BREEZHALER [Suspect]
     Active Substance: INDACATEROL
     Indication: DYSPNOEA
     Dosage: 150 UG, QD
     Route: 055
     Dates: start: 2013
  2. ATENSINA [Concomitant]
     Active Substance: CLONIDINE
     Indication: PRODUCT USED FOR UNKNOWN INDICATION
     Dosage: 200 MG, UNK
     Route: 065
  3. ONBREZ BREEZHALER [Suspect]
     Active Substance: INDACATEROL
     Indication: RESPIRATORY FAILURE
  4. ONBREZ BREEZHALER [Suspect]
     Active Substance: INDACATEROL
     Indication: TRACHEAL OBSTRUCTION
     Dosage: 150 UG, QD
     Route: 055
     Dates: start: 2015
  5. ONBREZ BREEZHALER [Suspect]
     Active Substance: INDACATEROL
     Indication: FATIGUE
     Dosage: 150 UG, QD (30 CAPUSLES)
     Route: 055
  6. ONBREZ BREEZHALER [Suspect]
     Active Substance: INDACATEROL
     Indication: BRONCHIAL OBSTRUCTION
     Dosage: 150 UG, QD
     Route: 055
  7. SUSTRATE [Concomitant]
     Active Substance: PROPATYL NITRATE
     Indication: PRODUCT USED FOR UNKNOWN INDICATION
     Route: 060
  8. RANITIDINE. [Concomitant]
     Active Substance: RANITIDINE
     Indication: PRODUCT USED FOR UNKNOWN INDICATION
     Route: 065
  9. SINVASTATINA [Concomitant]
     Active Substance: SIMVASTATIN
     Indication: PRODUCT USED FOR UNKNOWN INDICATION
     Route: 065
  10. ONBREZ BREEZHALER [Suspect]
     Active Substance: INDACATEROL
     Indication: CHEST DISCOMFORT
  11. DILTIAZEM. [Concomitant]
     Active Substance: DILTIAZEM
     Indication: PRODUCT USED FOR UNKNOWN INDICATION
     Dosage: 30 MG, UNK
     Route: 065
  12. CARVEDIOL [Concomitant]
     Active Substance: CARVEDILOL
     Indication: PRODUCT USED FOR UNKNOWN INDICATION
     Dosage: 125 MG, UNK
     Route: 065

REACTIONS (11)
  - Drug use disorder [Unknown]
  - Product use in unapproved indication [Unknown]
  - Micturition urgency [Unknown]
  - Disturbance in attention [Unknown]
  - Osteoporosis [Recovering/Resolving]
  - Fear [Unknown]
  - Pain [Unknown]
  - Feeling abnormal [Unknown]
  - Dyspnoea [Unknown]
  - Choking [Unknown]
  - Dyspnoea [Recovered/Resolved]

NARRATIVE: CASE EVENT DATE: 2016
